FAERS Safety Report 9206358 (Version 1)
Quarter: 2013Q2

REPORT INFORMATION
  Report Type: Spontaneous
  Country: BR (occurrence: BR)
  Receive Date: 20130403
  Receipt Date: 20130403
  Transmission Date: 20140414
  Serious: Yes (Hospitalization, Other)
  Sender: FDA-Public Use
  Company Number: PHHY2013BR031688

PATIENT
  Age: 53 Year
  Sex: Male

DRUGS (6)
  1. FORASEQ [Suspect]
     Indication: DYSPNOEA
     Dosage: UNK
  2. FORASEQ [Suspect]
     Dosage: UNK , BID (EVERY 12 HR)
     Dates: start: 20130328
  3. LOSARTAN [Concomitant]
     Indication: CARDIOMYOPATHY
     Dosage: 1 DF, BID
     Route: 048
  4. CARVEDILOL [Concomitant]
     Indication: CARDIOMYOPATHY
     Dosage: 2 DF, UNK (PER DAY)
     Route: 048
  5. ALDACTONE [Concomitant]
     Indication: DIURETIC THERAPY
     Dosage: 2 DF, PER DAY
     Route: 048
  6. ACETYLSALICYLIC ACID [Concomitant]
     Indication: BLOOD DISORDER
     Dosage: 1 DF, UNK (1 TABLET PER DAY)
     Route: 048

REACTIONS (1)
  - Cerebrovascular accident [Recovering/Resolving]
